FAERS Safety Report 4475320-5 (Version None)
Quarter: 2004Q4

REPORT INFORMATION
  Report Type: 
  Country: None (occurrence: None)
  Receive Date: 20041012
  Receipt Date: 20040928
  Transmission Date: 20050328
  Serious: Yes (Hospitalization, Other)
  Sender: FDA-Public Use
  Company Number: 2004071984

PATIENT
  Sex: Female

DRUGS (11)
  1. DILANTIN [Suspect]
     Indication: CONVULSION
     Dosage: 600 MG (200 MG, 3 IN 1 D), ORAL
     Route: 048
     Dates: start: 19910101, end: 19910101
  2. CELECOXIB (CELECOXIB) [Suspect]
     Indication: ARTHRITIS
     Dosage: 200 MG (200 MG, 1 IN 1 D), ORAL
     Route: 048
  3. CELECOXIB (CELECOXIB) [Suspect]
     Indication: BACK PAIN
     Dosage: 200 MG (200 MG, 1 IN 1 D), ORAL
     Route: 048
  4. CARBAMAZEPINE [Concomitant]
  5. VICODIN [Concomitant]
  6. CYCLOBENZAPRINE HYDROCHLORIDE [Concomitant]
  7. TIZANIDINE HCL [Concomitant]
  8. TORSEMIDE [Concomitant]
  9. FOSINOPRIL SODIUM [Concomitant]
  10. IRBESARTAN [Concomitant]
  11. MODAFINIL [Concomitant]

REACTIONS (6)
  - ARTHRITIS [None]
  - BACK PAIN [None]
  - HYPERSENSITIVITY [None]
  - LOSS OF CONSCIOUSNESS [None]
  - RASH [None]
  - URTICARIA [None]
